FAERS Safety Report 13133108 (Version 1)
Quarter: 2017Q1

REPORT INFORMATION
  Report Type: Spontaneous
  Country: US (occurrence: US)
  Receive Date: 20170120
  Receipt Date: 20170120
  Transmission Date: 20170428
  Serious: No
  Sender: FDA-Public Use
  Company Number: US-TEVA-655670USA

PATIENT
  Sex: Female
  Weight: 52.21 kg

DRUGS (2)
  1. MIRTAZAPINE. [Suspect]
     Active Substance: MIRTAZAPINE
     Indication: SLEEP DISORDER
     Dates: start: 20160423, end: 20160424
  2. MIRTAZAPINE. [Suspect]
     Active Substance: MIRTAZAPINE

REACTIONS (4)
  - Nervousness [Unknown]
  - Wrong technique in product usage process [Unknown]
  - Urticaria [Recovered/Resolved]
  - Product use issue [Unknown]
